FAERS Safety Report 9671715 (Version 1)
Quarter: 2013Q4

REPORT INFORMATION
  Report Type: Spontaneous
  Country: IN (occurrence: IN)
  Receive Date: 20131106
  Receipt Date: 20131106
  Transmission Date: 20140711
  Serious: Yes (Other)
  Sender: FDA-Public Use
  Company Number: IN-ASTRAZENECA-2013SE79796

PATIENT
  Sex: 0

DRUGS (1)
  1. BRILINTA [Suspect]
     Indication: ACUTE CORONARY SYNDROME
     Route: 048

REACTIONS (1)
  - Cerebral haemorrhage [Unknown]
